FAERS Safety Report 18259656 (Version 1)
Quarter: 2020Q3

REPORT INFORMATION
  Report Type: Report from Study
  Country: None (occurrence: US)
  Receive Date: 20200912
  Receipt Date: 20200912
  Transmission Date: 20201103
  Serious: Yes (Hospitalization, Other)
  Sender: FDA-Public Use
  Company Number: US-ABBVIE-20K-163-3559965-00

PATIENT
  Sex: Female

DRUGS (1)
  1. HUMIRA [Suspect]
     Active Substance: ADALIMUMAB
     Indication: RHEUMATOID ARTHRITIS
     Route: 058
     Dates: start: 20200701

REACTIONS (13)
  - Syncope [Unknown]
  - Hyperhidrosis [Unknown]
  - Anaemia [Unknown]
  - Uterine leiomyoma [Unknown]
  - Wrong technique in product usage process [Unknown]
  - Contusion [Unknown]
  - Arthralgia [Unknown]
  - Loss of personal independence in daily activities [Not Recovered/Not Resolved]
  - Chills [Unknown]
  - Nausea [Unknown]
  - Gait disturbance [Not Recovered/Not Resolved]
  - Incorrect dose administered [Unknown]
  - Menstrual disorder [Unknown]

NARRATIVE: CASE EVENT DATE: 2020
